FAERS Safety Report 9933881 (Version 1)
Quarter: 2014Q1

REPORT INFORMATION
  Report Type: Report from Study
  Country: US (occurrence: US)
  Receive Date: 20140228
  Receipt Date: 20140228
  Transmission Date: 20141002
  Serious: No
  Sender: FDA-Public Use
  Company Number: US-ABBVIE-13P-163-1179337-00

PATIENT
  Age: 56 Year
  Sex: Male
  Weight: 99.88 kg

DRUGS (6)
  1. ANDROGEL [Suspect]
     Indication: LIBIDO DECREASED
     Dosage: ONE PUMP
     Dates: start: 20130910
  2. ANDROGEL [Suspect]
     Indication: ASTHENIA
  3. AMLODIPINE [Concomitant]
     Indication: HYPERTENSION
  4. LISINOPRIL [Concomitant]
     Indication: HYPERTENSION
  5. PRAVASTATIN [Concomitant]
     Indication: BLOOD CHOLESTEROL INCREASED
  6. CLONAZEPAM [Concomitant]
     Indication: ANXIETY

REACTIONS (2)
  - Libido decreased [Not Recovered/Not Resolved]
  - Asthenia [Not Recovered/Not Resolved]
